FAERS Safety Report 8272388-5 (Version None)
Quarter: 2012Q2

REPORT INFORMATION
  Report Type: 
  Country: None (occurrence: None)
  Receive Date: 20120410
  Receipt Date: 20120326
  Transmission Date: 20120825
  Serious: Yes (Other)
  Sender: FDA-Public Use
  Company Number: CHPA2012US005938

PATIENT
  Age: 53 Year
  Sex: Male

DRUGS (6)
  1. MELATONIN [Concomitant]
     Indication: INSOMNIA
     Dosage: UNK
     Route: 048
     Dates: start: 20120201, end: 20120301
  2. ANTIHYPERTENSIVES [Concomitant]
     Indication: HYPERTENSION
     Dosage: UNK
  3. ALEVE                              /00256202/ [Concomitant]
     Indication: PAIN
     Dosage: UNK
     Route: 048
     Dates: start: 20120301
  4. OXYCODONE HCL [Concomitant]
     Indication: PAIN
     Dosage: 1.5 DF, 3 TIMES
     Route: 048
  5. EXCEDRIN PM CAPLETS [Suspect]
     Indication: PAIN
     Dosage: 2 DF, UNK, SOMETIMES 6-8 DF IN A DAY
     Route: 048
     Dates: start: 20120101
  6. ANTIDEPRESSANTS [Concomitant]
     Indication: DEPRESSION
     Dosage: UNK

REACTIONS (4)
  - OVERDOSE [None]
  - INAPPROPRIATE SCHEDULE OF DRUG ADMINISTRATION [None]
  - ARTHRALGIA [None]
  - LOSS OF CONSCIOUSNESS [None]
